FAERS Safety Report 16984098 (Version 1)
Quarter: 2019Q4

REPORT INFORMATION
  Report Type: Spontaneous
  Country: DE (occurrence: DE)
  Receive Date: 20191101
  Receipt Date: 20191101
  Transmission Date: 20200122
  Serious: Yes (Hospitalization, Other)
  Sender: FDA-Public Use
  Company Number: DE-JNJFOC-20191043452

PATIENT
  Age: 73 Year
  Sex: Female
  Weight: 54 kg

DRUGS (1)
  1. RIVAROXABAN [Suspect]
     Active Substance: RIVAROXABAN
     Indication: PRODUCT USED FOR UNKNOWN INDICATION
     Dosage: UNK
     Route: 048
     Dates: start: 2008, end: 20190711

REACTIONS (13)
  - Cough [Unknown]
  - Pulmonary haemorrhage [Unknown]
  - Pyrexia [Unknown]
  - Mechanical ventilation [Recovered/Resolved]
  - Hypertension [Not Recovered/Not Resolved]
  - Eye haemorrhage [Unknown]
  - Coma [Recovered/Resolved]
  - Pneumonia [Unknown]
  - Pneumonia [Unknown]
  - Pneumonia [Unknown]
  - Pneumonia [Unknown]
  - Pulmonary haemorrhage [Unknown]
  - Hypertension [Unknown]

NARRATIVE: CASE EVENT DATE: 2008
